FAERS Safety Report 9429780 (Version 1)
Quarter: 2013Q3

REPORT INFORMATION
  Report Type: Report from Study
  Country: DE (occurrence: TR)
  Receive Date: 20130730
  Receipt Date: 20130730
  Transmission Date: 20140515
  Serious: Yes (Death, Other)
  Sender: FDA-Public Use
  Company Number: DE-ACTELION-A-NJ2013-86369

PATIENT
  Sex: Male
  Weight: 50 kg

DRUGS (3)
  1. VENTAVIS [Suspect]
     Indication: PULMONARY HYPERTENSION
     Dosage: UNK, 6 TIMES A DAY
     Route: 055
     Dates: start: 20111019, end: 20130704
  2. VENTAVIS [Suspect]
     Dosage: UNK, TID DURING DIALYSIS
     Route: 055
     Dates: start: 20111019, end: 20130704
  3. INSULIN [Concomitant]

REACTIONS (2)
  - Sudden death [Fatal]
  - Leg amputation [Unknown]
